FAERS Safety Report 9188946 (Version 2)
Quarter: 2013Q2

REPORT INFORMATION
  Report Type: Spontaneous
  Country: US (occurrence: US)
  Receive Date: 20130326
  Receipt Date: 20130408
  Transmission Date: 20140414
  Serious: Yes (Hospitalization, Other)
  Sender: FDA-Public Use
  Company Number: US-AMGEN-USASP2013018096

PATIENT
  Age: 58 Year
  Sex: Female

DRUGS (13)
  1. ENBREL [Suspect]
     Indication: RHEUMATOID ARTHRITIS
     Dosage: 50 MG, QWK
     Dates: start: 20120411
  2. ENBREL [Suspect]
     Indication: PSORIATIC ARTHROPATHY
     Dosage: UNK
     Dates: start: 20111012, end: 20121221
  3. MULTIVITAMIN                       /00097801/ [Concomitant]
     Dosage: UNK UNK, QD
     Route: 048
  4. FISH OIL [Concomitant]
     Dosage: ONE TABLET BID
     Route: 048
  5. FOLIC ACID [Concomitant]
     Dosage: 1 MG, UNK, 1PILL BY MOUTH QD FOR THREE MONTHS
     Route: 048
  6. IBUPROFEN [Concomitant]
     Dosage: 800 MG, UNK, 1 PILL BY MOUTH TID FOR ONE MONTH
     Route: 048
  7. METHOTREXATE [Concomitant]
     Dosage: 2.5 MG, UNK, 1 PILL BY MOUTH Q1WK, THEN INCREASE TO 4PILLS BY MOUTH ONCE A WEEK.
     Route: 048
  8. MAXZIDE [Concomitant]
     Dosage: ONE TABLET DAILY
     Route: 048
  9. NORVASC [Concomitant]
     Dosage: 5 MG, QD (ONE TABLET DAILY)
     Route: 048
  10. PEPCID                             /00706001/ [Concomitant]
     Dosage: 20 MG, UNK, 1 PILL BY MOUTH BID FOR 1 MONTH
     Route: 048
  11. PREDNISONE [Concomitant]
     Dosage: 5 MG, UNK, 1PILL BY MOUTH QD FOR 1 MONTH
     Route: 048
  12. PROZAC [Concomitant]
     Dosage: 20 MG, UNK, 1 CAPSULE DAILY
     Route: 048
  13. SYNTHROID [Concomitant]
     Dosage: 112 MUG, UNK, ONE TABLET DAILY
     Route: 048

REACTIONS (10)
  - Vocal cord disorder [Recovered/Resolved]
  - Dyspnoea [Recovered/Resolved]
  - Dyspnoea exertional [Recovered/Resolved]
  - Dysphonia [Recovered/Resolved]
  - Drug hypersensitivity [Unknown]
  - Erythema [Recovered/Resolved]
  - Injection site reaction [Recovered/Resolved]
  - Injection site erythema [Recovered/Resolved]
  - Injection site swelling [Recovered/Resolved]
  - Injection site pruritus [Recovered/Resolved]
